FAERS Safety Report 6646123-8 (Version None)
Quarter: 2010Q1

REPORT INFORMATION
  Report Type: 
  Country: None (occurrence: None)
  Receive Date: 20100323
  Receipt Date: 20100310
  Transmission Date: 20100710
  Serious: Yes (Hospitalization)
  Sender: FDA-Public Use
  Company Number: GB-PFIZER INC-2005154482

PATIENT
  Age: 59 Year
  Sex: Female
  Weight: 47 kg

DRUGS (11)
  1. SUNITINIB MALATE [Suspect]
     Indication: GASTROINTESTINAL STROMAL TUMOUR
     Dosage: 50 MG, 1X/DAY
     Route: 048
     Dates: start: 20050914, end: 20051102
  2. FENTANYL [Concomitant]
     Route: 062
  3. FERROUS SULFATE TAB [Concomitant]
     Route: 048
  4. DOMPERIDONE [Concomitant]
     Dosage: 10 MG, UNK
     Route: 048
  5. MULTI-VITAMINS [Concomitant]
     Dosage: ONCE DAILY
     Route: 048
  6. LANSOPRAZOLE [Concomitant]
     Dosage: 30 MG, UNK
     Route: 048
  7. PHENYTOIN [Concomitant]
     Dosage: 100 MG, UNK
     Route: 048
  8. BENDROFLUAZIDE [Concomitant]
     Dosage: 2.5 MG, 1X/DAY
     Route: 048
  9. CO-DANTHRAMER [Concomitant]
     Dosage: 10 ML, UNK
     Route: 048
  10. LEVOMEPROMAZINE [Concomitant]
     Dosage: 6.25 MG, 1X/DAY
     Route: 048
  11. THIAMINE [Concomitant]
     Dosage: 100 MG, 1X/DAY
     Route: 048

REACTIONS (2)
  - CEREBROVASCULAR ACCIDENT [None]
  - DIARRHOEA [None]
